FAERS Safety Report 17329243 (Version 1)
Quarter: 2020Q1

REPORT INFORMATION
  Report Type: Spontaneous
  Country: US (occurrence: US)
  Receive Date: 20200127
  Receipt Date: 20200127
  Transmission Date: 20200409
  Serious: No
  Sender: FDA-Public Use
  Company Number: US-SA-2020SA012191

PATIENT
  Age: 56 Year
  Sex: Female

DRUGS (3)
  1. DUPIXENT [Suspect]
     Active Substance: DUPILUMAB
     Indication: ASTHMA
     Dosage: 300 MG, QOW
     Route: 058
     Dates: start: 20191203
  2. PEDIALYTE [ELECTROLYTES NOS;GLUCOSE] [Suspect]
     Active Substance: DEXTROSE\ELECTROLYTES NOS
     Indication: DIARRHOEA
  3. PEDIALYTE [ELECTROLYTES NOS;GLUCOSE] [Suspect]
     Active Substance: DEXTROSE\ELECTROLYTES NOS
     Indication: MALAISE

REACTIONS (2)
  - Diarrhoea [Unknown]
  - Peripheral swelling [Unknown]
